FAERS Safety Report 7456992-X (Version None)
Quarter: 2011Q1

REPORT INFORMATION
  Report Type: 
  Country: None (occurrence: None)
  Receive Date: 20110302
  Receipt Date: 20101124
  Transmission Date: 20110831
  Serious: Yes (Other)
  Sender: FDA-Public Use
  Company Number: 022762

PATIENT
  Sex: Female
  Weight: 95 kg

DRUGS (4)
  1. LEVOTHYROXINE SODIUM [Concomitant]
  2. CIMZIA [Suspect]
     Indication: CROHN'S DISEASE
     Dosage: (400 MG 1X/MONTH SUBCUTANEOUS)
     Route: 058
     Dates: start: 20080601
  3. PREMARIN [Concomitant]
  4. CITALOPRAM HYDROBROMIDE [Concomitant]

REACTIONS (9)
  - COLD SWEAT [None]
  - VOMITING [None]
  - IMPAIRED GASTRIC EMPTYING [None]
  - FEELING ABNORMAL [None]
  - DYSURIA [None]
  - FLATULENCE [None]
  - MALAISE [None]
  - ABDOMINAL PAIN [None]
  - ASTHENIA [None]
